FAERS Safety Report 8106627-8 (Version None)
Quarter: 2012Q1

REPORT INFORMATION
  Report Type: 
  Country: None (occurrence: None)
  Receive Date: 20120130
  Receipt Date: 20120112
  Transmission Date: 20120608
  Serious: Yes (Hospitalization, Disabling)
  Sender: FDA-Public Use
  Company Number: DSA_48945_2012

PATIENT
  Age: 72 Year
  Sex: Male

DRUGS (11)
  1. SIMVASTATIN [Suspect]
     Indication: PRODUCT USED FOR UNKNOWN INDICATION
     Dosage: (10 MG QD, IN THE EVENING ORAL)
     Route: 048
     Dates: start: 20111006, end: 20111017
  2. PLACEBO [Suspect]
     Indication: TYPE 2 DIABETES MELLITUS
     Dosage: (DF)
  3. NITROGLYCERIN [Suspect]
     Indication: PRODUCT USED FOR UNKNOWN INDICATION
     Dosage: (500 UG, FRQUENCY UNKNOWN SUBLINGUAL)
     Route: 060
     Dates: start: 20111006, end: 20111017
  4. FAMOTIDINE [Suspect]
     Indication: PRODUCT USED FOR UNKNOWN INDICATION
     Dosage: (20 MG BID ORAL)
     Route: 048
     Dates: start: 20111006, end: 20111017
  5. ASPIRIN [Suspect]
     Indication: PRODUCT USED FOR UNKNOWN INDICATION
     Dosage: (80 MG QD ORAL), (80 MG 1X/WEEK ORAL)
     Route: 048
     Dates: start: 20111021, end: 20111025
  6. ASPIRIN [Suspect]
     Indication: PRODUCT USED FOR UNKNOWN INDICATION
     Dosage: (80 MG QD ORAL), (80 MG 1X/WEEK ORAL)
     Route: 048
     Dates: start: 20111006, end: 20111017
  7. METFORMIN HCL [Suspect]
     Indication: PRODUCT USED FOR UNKNOWN INDICATION
     Dosage: (250 MG TID ORAL)
     Route: 048
     Dates: start: 20111006, end: 20111017
  8. METOPROLOL TARTRATE [Suspect]
     Indication: PRODUCT USED FOR UNKNOWN INDICATION
     Dosage: (150 MG BID METOPROLOL TARTRATE) (NOT SPECIFIED)
     Dates: start: 20111021, end: 20111025
  9. METOPROLOL TARTRATE [Suspect]
     Indication: PRODUCT USED FOR UNKNOWN INDICATION
     Dosage: (150 MG BID METOPROLOL TARTRATE) (NOT SPECIFIED)
     Dates: start: 20111006, end: 20111017
  10. ENALAPRIL MALEATE [Suspect]
     Indication: PRODUCT USED FOR UNKNOWN INDICATION
     Dosage: (10 MG BID ORAL)
     Route: 048
     Dates: start: 20111006, end: 20111017
  11. ELANTAN (ELANTAN - ISOSORBIDE MONONITRATE) (NOT SPECIFIED) [Suspect]
     Indication: PRODUCT USED FOR UNKNOWN INDICATION
     Dosage: (20 MG BID ORAL)
     Route: 048
     Dates: start: 20111006, end: 20111017

REACTIONS (1)
  - CERVICAL CORD COMPRESSION [None]
